FAERS Safety Report 9928037 (Version 1)
Quarter: 2014Q1

REPORT INFORMATION
  Report Type: Spontaneous
  Country: US (occurrence: US)
  Receive Date: 20140227
  Receipt Date: 20140227
  Transmission Date: 20141002
  Serious: Yes (Other)
  Sender: FDA-Public Use
  Company Number: US-BAYER-2014-029758

PATIENT
  Age: 34 Year
  Sex: Female

DRUGS (6)
  1. YASMIN [Suspect]
  2. OCELLA [Suspect]
  3. FISH OIL [Concomitant]
     Dosage: UNK
     Route: 048
  4. GLUCOSAMINE [Concomitant]
     Dosage: 500 MG, UNK
     Route: 048
  5. VITAMIN E [Concomitant]
     Dosage: 400 MG, UNK
     Route: 048
  6. CALCIUM +VIT D [Concomitant]
     Dosage: 500 -200 MG UNIT PER TABLET
     Route: 048

REACTIONS (1)
  - Deep vein thrombosis [None]
